FAERS Safety Report 7790054-7 (Version None)
Quarter: 2011Q3

REPORT INFORMATION
  Report Type: 
  Country: None (occurrence: None)
  Receive Date: 20110930
  Receipt Date: 20101122
  Transmission Date: 20111222
  Serious: No
  Sender: FDA-Public Use
  Company Number: US-ASTRAZENECA-2008UW00511

PATIENT
  Age: 66 Year
  Sex: Female
  Weight: 70.3 kg

DRUGS (2)
  1. ARIMIDEX [Suspect]
     Indication: BREAST CANCER
     Route: 048
     Dates: start: 20070901
  2. ADVAIRE VIRIVA [Concomitant]

REACTIONS (5)
  - OROPHARYNGEAL PAIN [None]
  - ALOPECIA [None]
  - HOT FLUSH [None]
  - ARTHRITIS [None]
  - ARTHRALGIA [None]
